FAERS Safety Report 6839269-2 (Version None)
Quarter: 2010Q3

REPORT INFORMATION
  Report Type: 
  Country: None (occurrence: None)
  Receive Date: 20100714
  Receipt Date: 20100707
  Transmission Date: 20110219
  Serious: Yes (Other)
  Sender: FDA-Public Use
  Company Number: US-JNJFOC-20100702306

PATIENT
  Age: 43 Year
  Sex: Female

DRUGS (1)
  1. LEVAQUIN [Suspect]
     Indication: PAIN MANAGEMENT
     Route: 048

REACTIONS (4)
  - ARRHYTHMIA [None]
  - GASTROINTESTINAL INFECTION [None]
  - LIGAMENT RUPTURE [None]
  - TENDON RUPTURE [None]
